FAERS Safety Report 20814580 (Version 2)
Quarter: 2022Q2

REPORT INFORMATION
  Report Type: Spontaneous
  Country: US (occurrence: US)
  Receive Date: 20220511
  Receipt Date: 20220609
  Transmission Date: 20220720
  Serious: No
  Sender: FDA-Public Use
  Company Number: US-PFIZER INC-202200661417

PATIENT
  Age: 50 Year
  Sex: Female
  Weight: 68.027 kg

DRUGS (2)
  1. PAXLOVID [Suspect]
     Active Substance: NIRMATRELVIR\RITONAVIR
     Indication: COVID-19 treatment
     Dosage: TAKEN MORNING AND EVENING AS PACKAGE DIRECTED
     Dates: start: 20220424, end: 20220429
  2. ETHINYL ESTRADIOL\NORETHINDRONE [Concomitant]
     Active Substance: ETHINYL ESTRADIOL\NORETHINDRONE
     Indication: Hormone replacement therapy
     Dosage: UNK
     Dates: start: 202201

REACTIONS (5)
  - Sinus congestion [Recovered/Resolved]
  - Paranasal sinus hypersecretion [Recovered/Resolved]
  - Malaise [Recovered/Resolved]
  - Chills [Recovered/Resolved]
  - Headache [Recovered/Resolved]

NARRATIVE: CASE EVENT DATE: 20220504
